FAERS Safety Report 15232452 (Version 1)
Quarter: 2018Q3

REPORT INFORMATION
  Report Type: Spontaneous
  Country: US (occurrence: US)
  Receive Date: 20180802
  Receipt Date: 20180802
  Transmission Date: 20181010
  Serious: Yes (Hospitalization)
  Sender: FDA-Public Use
  Company Number: US-MYLANLABS-2018M1057420

PATIENT
  Age: 60 Year
  Sex: Male

DRUGS (3)
  1. NOREPINEPHRINE. [Suspect]
     Active Substance: NOREPINEPHRINE
     Indication: CATHETER MANAGEMENT
     Route: 050
  2. HEPARIN [Suspect]
     Active Substance: HEPARIN SODIUM
     Indication: ANTICOAGULANT THERAPY
     Dosage: GIVEN DURING CATHETER DIRECTED THROMBOLYSIS
     Route: 065
  3. VASOPRESSIN. [Concomitant]
     Active Substance: VASOPRESSIN
     Indication: CATHETER PLACEMENT
     Route: 050

REACTIONS (3)
  - Pericardial effusion [Not Recovered/Not Resolved]
  - Cardiac tamponade [Not Recovered/Not Resolved]
  - Condition aggravated [Not Recovered/Not Resolved]
